FAERS Safety Report 6956095-4 (Version None)
Quarter: 2010Q3

REPORT INFORMATION
  Report Type: 
  Country: None (occurrence: None)
  Receive Date: 20100830
  Receipt Date: 20100825
  Transmission Date: 20110219
  Serious: Yes (Death)
  Sender: FDA-Public Use
  Company Number: US-ASTRAZENECA-2010SE31554

PATIENT
  Age: 57 Year
  Sex: Female

DRUGS (12)
  1. SEROQUEL [Suspect]
     Indication: BIPOLAR DISORDER
     Route: 048
  2. SEROQUEL [Suspect]
     Route: 048
     Dates: start: 20090601
  3. SEROQUEL [Suspect]
     Route: 048
     Dates: start: 20090101
  4. FENTANYL CITRATE [Suspect]
     Indication: ARTHRITIS
  5. LEXAPRO [Concomitant]
  6. XANAX [Concomitant]
  7. XANAX [Concomitant]
  8. NEURONTIN [Concomitant]
  9. NEURONTIN [Concomitant]
     Dosage: AT NIGHT
  10. ADDERALL 10 [Concomitant]
  11. NEXIUM [Concomitant]
     Dosage: PRN
  12. LORACET [Concomitant]
     Indication: ARTHRITIS

REACTIONS (4)
  - CARDIAC DISORDER [None]
  - DRUG TOXICITY [None]
  - LOSS OF CONSCIOUSNESS [None]
  - OVERDOSE [None]
